FAERS Safety Report 9381965 (Version 2)
Quarter: 2013Q3

REPORT INFORMATION
  Report Type: Spontaneous
  Country: US (occurrence: US)
  Receive Date: 20130703
  Receipt Date: 20130823
  Transmission Date: 20140515
  Serious: Yes (Death, Hospitalization, Other)
  Sender: FDA-Public Use
  Company Number: US-JNJFOC-20130612991

PATIENT
  Sex: Female

DRUGS (11)
  1. REMICADE [Suspect]
     Indication: RHEUMATOID ARTHRITIS
     Dosage: 5 MG/KG
     Route: 042
     Dates: start: 20130412
  2. REMICADE [Suspect]
     Indication: RHEUMATOID ARTHRITIS
     Dosage: 5 MG/KG
     Route: 042
     Dates: start: 2001
  3. METHOTREXATE [Concomitant]
     Indication: RHEUMATOID ARTHRITIS
     Route: 065
     Dates: start: 1995
  4. CLONIDINE [Concomitant]
     Dosage: 1/2 PO BID
     Route: 048
  5. PREDNISOLONE [Concomitant]
     Route: 065
  6. SIMVASTATIN [Concomitant]
     Route: 048
  7. CALCITRIOL [Concomitant]
     Route: 048
  8. FUROSEMIDE [Concomitant]
     Route: 048
  9. CARVEDILOL [Concomitant]
     Route: 048
  10. HEMAX [Concomitant]
     Route: 048
  11. HYDRALAZINE [Concomitant]
     Route: 065

REACTIONS (9)
  - Death [Fatal]
  - Hypertension [Unknown]
  - Renal failure chronic [Unknown]
  - Rheumatoid arthritis [Unknown]
  - Atrial fibrillation [Unknown]
  - Weight decreased [Unknown]
  - Anaemia [Unknown]
  - Drug ineffective [Unknown]
  - Alopecia [Unknown]
